FAERS Safety Report 4318541-4 (Version None)
Quarter: 2004Q1

REPORT INFORMATION
  Report Type: 
  Country: None (occurrence: None)
  Receive Date: 20040315
  Receipt Date: 20040303
  Transmission Date: 20041129
  Serious: Yes (Hospitalization)
  Sender: FDA-Public Use
  Company Number: 2004202706DE

PATIENT
  Age: 85 Year
  Sex: Female
  Weight: 64 kg

DRUGS (4)
  1. CELEBREX [Suspect]
     Indication: OSTEOARTHRITIS
     Dosage: 200 MG, QD, ORAL
     Route: 048
     Dates: start: 20010101, end: 20031114
  2. AMARYL [Suspect]
     Dosage: ORAL
     Route: 048
     Dates: end: 20031114
  3. MELPERONE (MELPERONE) [Concomitant]
  4. TRAMADOLOR (TRAMADOL HYDROCHLORIDE) [Concomitant]

REACTIONS (3)
  - COLITIS [None]
  - DRUG INTERACTION [None]
  - URINARY TRACT INFECTION ENTEROCOCCAL [None]
